FAERS Safety Report 16106196 (Version 3)
Quarter: 2019Q2

REPORT INFORMATION
  Report Type: Spontaneous
  Country: CH (occurrence: CH)
  Receive Date: 20190322
  Receipt Date: 20190417
  Transmission Date: 20190711
  Serious: Yes (Hospitalization, Other)
  Sender: FDA-Public Use
  Company Number: CH-ABBVIE-19K-151-2713523-00

PATIENT
  Sex: Male
  Weight: 84 kg

DRUGS (8)
  1. VENCLYXTO [Suspect]
     Active Substance: VENETOCLAX
     Route: 048
     Dates: start: 201902, end: 20190319
  2. LANTUS [Concomitant]
     Active Substance: INSULIN GLARGINE
     Indication: PRODUCT USED FOR UNKNOWN INDICATION
     Dosage: ACCORDING TO BLOOD SUGAR LEVEL
  3. ALLOPUR [Concomitant]
     Active Substance: ALLOPURINOL
     Indication: PRODUCT USED FOR UNKNOWN INDICATION
  4. VENCLYXTO [Suspect]
     Active Substance: VENETOCLAX
     Indication: PLASMA CELL MYELOMA
     Route: 048
     Dates: start: 20181023, end: 201902
  5. PANTOPRAZOLUM [Concomitant]
     Active Substance: PANTOPRAZOLE
     Indication: PRODUCT USED FOR UNKNOWN INDICATION
  6. CALCIMAGON [Concomitant]
     Active Substance: CALCIUM
     Indication: PRODUCT USED FOR UNKNOWN INDICATION
  7. VELCADE [Concomitant]
     Active Substance: BORTEZOMIB
     Indication: PRODUCT USED FOR UNKNOWN INDICATION
     Dosage: WHEN VELCADE WAS ADMINISTERED
     Dates: start: 20181029, end: 20190108
  8. DEXAMETHASON [Concomitant]
     Active Substance: DEXAMETHASONE
     Indication: PRODUCT USED FOR UNKNOWN INDICATION

REACTIONS (12)
  - Therapeutic product effect incomplete [Unknown]
  - Pneumonia [Recovered/Resolved]
  - Peripheral swelling [Recovering/Resolving]
  - Pancytopenia [Not Recovered/Not Resolved]
  - Joint swelling [Recovering/Resolving]
  - Arthralgia [Recovering/Resolving]
  - Plasma cell myeloma [Unknown]
  - General physical health deterioration [Unknown]
  - Synovitis [Recovering/Resolving]
  - C-reactive protein increased [Unknown]
  - Cystitis [Unknown]
  - Upper respiratory tract infection [Unknown]
